FAERS Safety Report 5639903-9 (Version None)
Quarter: 2008Q1

REPORT INFORMATION
  Report Type: 
  Country: None (occurrence: None)
  Receive Date: 20080226
  Receipt Date: 20080226
  Transmission Date: 20080703
  Serious: Yes (Hospitalization)
  Sender: FDA-Public Use
  Company Number: None

PATIENT
  Age: 71 Year
  Sex: Male
  Weight: 104.3273 kg

DRUGS (1)
  1. TOPROL-XL [Suspect]
     Indication: HYPERTENSION
     Dosage: 12.5 MG DAILY PO
     Route: 048
     Dates: start: 20080208, end: 20080218

REACTIONS (7)
  - BRADYCARDIA [None]
  - GAIT DISTURBANCE [None]
  - HYPERTENSION [None]
  - NODAL RHYTHM [None]
  - TACHYCARDIA [None]
  - VENTRICULAR EXTRASYSTOLES [None]
  - VERTIGO [None]
